FAERS Safety Report 5518752-6 (Version None)
Quarter: 2007Q4

REPORT INFORMATION
  Report Type: 
  Country: None (occurrence: None)
  Receive Date: 20071113
  Receipt Date: 20071031
  Transmission Date: 20080405
  Serious: Yes (Other)
  Sender: FDA-Public Use
  Company Number: 2007-03403

PATIENT
  Age: 64 Year
  Sex: Female
  Weight: 45 kg

DRUGS (10)
  1. VELCADE [Suspect]
     Indication: MULTIPLE MYELOMA
     Dosage: 1.80 MG, INTRAVENOUS
     Route: 042
     Dates: start: 20070730, end: 20070806
  2. DEXAMETHASONE [Concomitant]
  3. FAMOTIDINE [Concomitant]
  4. ALLOPURINOL [Concomitant]
  5. NAIXAN (NAPROXEN SODIUM) [Concomitant]
  6. MUCOSTA (REBAMIPIDE) [Concomitant]
  7. ZOVIRAX [Concomitant]
  8. ZITHROMAX [Concomitant]
  9. MEROPEN (MEROPENEM) [Concomitant]
  10. VENOGLOBULIN [Concomitant]

REACTIONS (6)
  - ANOREXIA [None]
  - ASTHMA [None]
  - SINUSITIS [None]
  - THROMBOCYTOPENIA [None]
  - UPPER RESPIRATORY TRACT INFECTION BACTERIAL [None]
  - UPPER RESPIRATORY TRACT INFLAMMATION [None]
